FAERS Safety Report 8586153-2 (Version None)
Quarter: 2012Q3

REPORT INFORMATION
  Report Type: 
  Country: None (occurrence: None)
  Receive Date: 20120810
  Receipt Date: 20120803
  Transmission Date: 20120928
  Serious: Yes (Death)
  Sender: FDA-Public Use
  Company Number: US-GLAXOSMITHKLINE-A0981545A

PATIENT
  Age: 88 Year
  Sex: Male

DRUGS (22)
  1. ASCORBIC ACID [Concomitant]
  2. ASPIRIN [Concomitant]
  3. FERROUS SULFATE TAB [Concomitant]
  4. COLACE [Concomitant]
  5. FLEXERIL [Concomitant]
  6. LOVAZA [Suspect]
     Indication: BLOOD TRIGLYCERIDES INCREASED
     Dosage: 1CAP TWICE PER DAY
     Route: 048
  7. CLARITIN [Concomitant]
  8. LASIX [Concomitant]
  9. ALBUTEROL [Concomitant]
  10. PROSCAR [Concomitant]
  11. PROVENTIL [Concomitant]
  12. ULORIC [Concomitant]
  13. SYNTHROID [Concomitant]
  14. ATROVENT [Concomitant]
  15. MINOCYCLINE HCL [Concomitant]
  16. HYDROCORTISONE CREAM [Concomitant]
  17. ULTRAM [Concomitant]
  18. METROGEL [Concomitant]
  19. FOLIC ACID [Concomitant]
  20. MULTI-VITAMIN [Concomitant]
  21. FLOMAX [Concomitant]
  22. ZANTAC [Concomitant]

REACTIONS (6)
  - PERICARDITIS [None]
  - OFF LABEL USE [None]
  - CARDIAC ARREST [None]
  - CARDIAC FAILURE CONGESTIVE [None]
  - RESPIRATORY TRACT INFECTION [None]
  - GASTROINTESTINAL HAEMORRHAGE [None]
